FAERS Safety Report 7647086-9 (Version None)
Quarter: 2011Q3

REPORT INFORMATION
  Report Type: 
  Country: None (occurrence: None)
  Receive Date: 20110801
  Receipt Date: 20110721
  Transmission Date: 20111222
  Serious: Yes (Other)
  Sender: FDA-Public Use
  Company Number: US-JNJFOC-20110709655

PATIENT
  Sex: Female
  Weight: 78.02 kg

DRUGS (6)
  1. LEVOTHYROXINE SODIUM [Concomitant]
     Indication: THYROID DISORDER
     Route: 048
  2. FLURAZEPAM [Concomitant]
     Indication: INSOMNIA
     Dosage: IN THE NIGHT
     Route: 048
  3. PREVACID [Concomitant]
     Indication: GASTROOESOPHAGEAL REFLUX DISEASE
     Route: 048
  4. TRIAMTERENE [Concomitant]
     Indication: MENIERE'S DISEASE
     Route: 048
  5. ELMIRON [Suspect]
     Indication: CYSTITIS INTERSTITIAL
     Route: 048
  6. PREMARIN [Concomitant]
     Indication: HORMONE REPLACEMENT THERAPY
     Route: 048

REACTIONS (7)
  - WEIGHT INCREASED [None]
  - ROAD TRAFFIC ACCIDENT [None]
  - CONSTIPATION [None]
  - INTERVERTEBRAL DISC PROTRUSION [None]
  - MEMORY IMPAIRMENT [None]
  - PAIN [None]
  - IMPAIRED DRIVING ABILITY [None]
